FAERS Safety Report 10408982 (Version 1)
Quarter: 2014Q3

REPORT INFORMATION
  Report Type: Spontaneous
  Country: GB (occurrence: None)
  Receive Date: 20140822
  Receipt Date: 20140822
  Transmission Date: 20150326
  Serious: Yes (Congenital Anomaly, Other)
  Sender: FDA-Public Use
  Company Number: GB-ZYDUS-004292

PATIENT
  Sex: Male

DRUGS (1)
  1. VALPROIC ACID (VALPROIC ACID) [Suspect]
     Active Substance: VALPROIC ACID
     Dosage: 500.00-MG 2.00 TIMESPER 1.0 DAYS, TRANSPLACENTS
     Route: 064

REACTIONS (12)
  - Talipes [None]
  - Congenital pulmonary artery anomaly [None]
  - Cardiac murmur [None]
  - Visual acuity reduced [None]
  - Foetal exposure during pregnancy [None]
  - Inguinal hernia [None]
  - Speech disorder [None]
  - Foetal growth restriction [None]
  - Foetal anticonvulsant syndrome [None]
  - Iris coloboma [None]
  - Ankyloglossia congenital [None]
  - Hypotonia [None]
